FAERS Safety Report 20693959 (Version 1)
Quarter: 2022Q2

REPORT INFORMATION
  Report Type: Spontaneous
  Country: US (occurrence: US)
  Receive Date: 20220411
  Receipt Date: 20220411
  Transmission Date: 20220721
  Serious: Yes (Hospitalization, Other)
  Sender: FDA-Public Use
  Company Number: US-NOVOPROD-906624

PATIENT
  Sex: Female
  Weight: 96.1 kg

DRUGS (3)
  1. TRESIBA [Suspect]
     Active Substance: INSULIN DEGLUDEC
     Indication: Product used for unknown indication
     Dosage: UNK
     Route: 058
  2. TRESIBA [Suspect]
     Active Substance: INSULIN DEGLUDEC
     Dosage: 30 UNITS
     Route: 058
  3. KORLYM [Suspect]
     Active Substance: MIFEPRISTONE
     Indication: Cushing^s syndrome
     Route: 058

REACTIONS (12)
  - Loss of consciousness [Unknown]
  - Fungal infection [Unknown]
  - Facial bones fracture [Unknown]
  - Urinary tract infection [Unknown]
  - Dehydration [Unknown]
  - Vomiting [Unknown]
  - Hypokalaemia [Unknown]
  - Skin laceration [Unknown]
  - Contusion [Unknown]
  - Pelvic floor muscle weakness [Unknown]
  - Hypoglycaemia [Unknown]
  - Blood glucose increased [Unknown]
